FAERS Safety Report 11746835 (Version 1)
Quarter: 2015Q4

REPORT INFORMATION
  Report Type: Report from Study
  Country: CH (occurrence: CH)
  Receive Date: 20151117
  Receipt Date: 20151117
  Transmission Date: 20160304
  Serious: Yes (Hospitalization, Disabling)
  Sender: FDA-Public Use
  Company Number: CH-BIOGENIDEC-2015BI145793

PATIENT
  Sex: Male

DRUGS (1)
  1. FAMPRIDINE [Suspect]
     Active Substance: DALFAMPRIDINE
     Indication: PRODUCT USED FOR UNKNOWN INDICATION
     Route: 048

REACTIONS (1)
  - Radius fracture [Recovered/Resolved with Sequelae]

NARRATIVE: CASE EVENT DATE: 20140611
